FAERS Safety Report 15187407 (Version 2)
Quarter: 2019Q1

REPORT INFORMATION
  Report Type: Report from Study
  Country: US (occurrence: US)
  Receive Date: 20180723
  Receipt Date: 20190130
  Transmission Date: 20190417
  Serious: No
  Sender: FDA-Public Use
  Company Number: US-EXELIXIS-CABO-18013564

PATIENT
  Sex: Male

DRUGS (9)
  1. FUROSEMIDE. [Concomitant]
     Active Substance: FUROSEMIDE
     Dosage: UNK
  2. LISINOPRIL. [Concomitant]
     Active Substance: LISINOPRIL
     Dosage: UNK
  3. ATORVASTATIN [Concomitant]
     Active Substance: ATORVASTATIN
     Dosage: UNK
  4. LEVOTHYROXINE. [Concomitant]
     Active Substance: LEVOTHYROXINE
     Dosage: UNK
  5. CABOMETYX [Suspect]
     Active Substance: CABOZANTINIB S-MALATE
     Indication: RENAL CANCER
     Dosage: 20 MG, QD
     Route: 048
     Dates: start: 20180105, end: 2018
  6. NIACIN. [Concomitant]
     Active Substance: NIACIN
     Dosage: UNK
  7. IMODIUM A-D [Concomitant]
     Active Substance: LOPERAMIDE HYDROCHLORIDE
     Dosage: UNK
  8. OMEPRAZOLE. [Concomitant]
     Active Substance: OMEPRAZOLE
     Dosage: UNK
  9. CABOMETYX [Suspect]
     Active Substance: CABOZANTINIB S-MALATE
     Indication: RETROPERITONEAL CANCER
     Dosage: 20 MG, UNK (ONE PILL ON MONDAYS, WEDNESDAYS AND FRIDAYS)
     Route: 048
     Dates: start: 2018

REACTIONS (6)
  - Weight decreased [Unknown]
  - Dyspnoea [Unknown]
  - Depression [Unknown]
  - Diarrhoea [Unknown]
  - Fatigue [Unknown]
  - Muscle spasms [Not Recovered/Not Resolved]
